FAERS Safety Report 5716509-4 (Version None)
Quarter: 2008Q2

REPORT INFORMATION
  Report Type: 
  Country: None (occurrence: None)
  Receive Date: 20080421
  Receipt Date: 20070306
  Transmission Date: 20081010
  Serious: Yes (Hospitalization)
  Sender: FDA-Public Use
  Company Number: WAES 0703USA01089

PATIENT
  Sex: Female

DRUGS (3)
  1. SINGULAIR [Suspect]
     Dosage: PO
     Route: 048
  2. ADVAIR DISKUS 500/50 [Suspect]
     Indication: CHRONIC OBSTRUCTIVE PULMONARY DISEASE
     Dosage: 1 MICROGM/BID/INH
     Route: 055
  3. ALBUTEROL SULFATE [Concomitant]

REACTIONS (9)
  - BODY HEIGHT DECREASED [None]
  - CANDIDIASIS [None]
  - COUGH [None]
  - HEADACHE [None]
  - JOINT STIFFNESS [None]
  - MUSCULOSKELETAL PAIN [None]
  - OSTEOPOROSIS [None]
  - THROAT IRRITATION [None]
  - UPPER RESPIRATORY TRACT INFECTION [None]
